FAERS Safety Report 5320816-7 (Version None)
Quarter: 2007Q2

REPORT INFORMATION
  Report Type: 
  Country: None (occurrence: None)
  Receive Date: 20070502
  Receipt Date: 20070417
  Transmission Date: 20071010
  Serious: Yes (Other)
  Sender: FDA-Public Use
  Company Number: A-US2007-13952

PATIENT
  Age: 70 Year
  Sex: Female
  Weight: 49.9 kg

DRUGS (14)
  1. TRACLEER [Suspect]
     Indication: PULMONARY HYPERTENSION
     Dosage: SEE IMAGE
     Route: 048
     Dates: start: 20061106, end: 20061206
  2. TRACLEER [Suspect]
     Indication: PULMONARY HYPERTENSION
     Dosage: SEE IMAGE
     Route: 048
     Dates: start: 20061207, end: 20070412
  3. SPIRIVA [Concomitant]
  4. ADVAIR (SALMETEROLX INAFOATE, FLUTICASONE PROPIONATE) [Concomitant]
  5. LASIX (FUROSEMIDE SODIUN) [Concomitant]
  6. SPIRONOLACTONE [Concomitant]
  7. RISPERDAL [Concomitant]
  8. PAXIL [Concomitant]
  9. METFORMIN (METFORMIN HYDROCHLORIDE) [Concomitant]
  10. POTASSIUM (POTASSIUM) [Concomitant]
  11. ALBUTEROL (SALBUTAMOL SULFATE) [Concomitant]
  12. VASOTEC [Concomitant]
  13. XOPENEX [Concomitant]
  14. ACIPHEX [Concomitant]

REACTIONS (4)
  - ANAEMIA [None]
  - EYE PRURITUS [None]
  - NASAL DISCOMFORT [None]
  - POST PROCEDURAL INFECTION [None]
